FAERS Safety Report 14833383 (Version 2)
Quarter: 2018Q3

REPORT INFORMATION
  Report Type: Spontaneous
  Country: BE (occurrence: BE)
  Receive Date: 20180501
  Receipt Date: 20180801
  Transmission Date: 20181010
  Serious: Yes (Hospitalization, Other)
  Sender: FDA-Public Use
  Company Number: BE-US WORLDMEDS, LLC-E2B_00002727

PATIENT
  Age: 87 Year
  Sex: Male
  Weight: 55 kg

DRUGS (9)
  1. SINTROM [Concomitant]
     Active Substance: ACENOCOUMAROL
     Indication: CARDIAC FIBRILLATION
  2. ABILIFY [Concomitant]
     Active Substance: ARIPIPRAZOLE
     Indication: MAJOR DEPRESSION
  3. D?CURE [Concomitant]
     Active Substance: CHOLECALCIFEROL
  4. ENALAPRIL [Concomitant]
     Active Substance: ENALAPRIL
  5. XADAGO [Suspect]
     Active Substance: SAFINAMIDE MESYLATE
     Indication: PARKINSON^S DISEASE
     Route: 048
     Dates: start: 20180223
  6. L DOPA [Concomitant]
     Active Substance: LEVODOPA
     Indication: PARKINSON^S DISEASE
  7. BEFACT [Concomitant]
  8. BURINEX [Concomitant]
     Active Substance: BUMETANIDE
  9. BISOPROLOL [Concomitant]
     Active Substance: BISOPROLOL

REACTIONS (2)
  - Cardiac failure [Unknown]
  - Insomnia [Unknown]
